FAERS Safety Report 18253736 (Version 1)
Quarter: 2020Q3

REPORT INFORMATION
  Report Type: Report from Study
  Country: AR (occurrence: AR)
  Receive Date: 20200910
  Receipt Date: 20200910
  Transmission Date: 20201103
  Serious: Yes (Other)
  Sender: FDA-Public Use
  Company Number: AR-JNJFOC-20191037566

PATIENT
  Age: 16 Year
  Sex: Female
  Weight: 65 kg

DRUGS (1)
  1. REMICADE [Suspect]
     Active Substance: INFLIXIMAB
     Indication: COLITIS ULCERATIVE
     Route: 042
     Dates: start: 20181105

REACTIONS (5)
  - Off label use [Unknown]
  - Haematochezia [Unknown]
  - Pain [Unknown]
  - Product use issue [Unknown]
  - Mucous stools [Unknown]

NARRATIVE: CASE EVENT DATE: 20181105
